FAERS Safety Report 13600888 (Version 1)
Quarter: 2017Q2

REPORT INFORMATION
  Report Type: Spontaneous
  Country: US (occurrence: US)
  Receive Date: 20170601
  Receipt Date: 20170601
  Transmission Date: 20170830
  Serious: Yes (Hospitalization)
  Sender: FDA-Public Use
  Company Number: US-GLENMARK PHARMACEUTICALS-2017GMK027693

PATIENT
  Age: 80 Year
  Sex: Male

DRUGS (1)
  1. LITHIUM. [Suspect]
     Active Substance: LITHIUM
     Indication: BIPOLAR DISORDER
     Dosage: UNK
     Route: 065
     Dates: start: 1981

REACTIONS (8)
  - Myoclonus [Recovered/Resolved]
  - Dysphonia [Recovering/Resolving]
  - Feeding disorder [Unknown]
  - Fatigue [Recovering/Resolving]
  - Hallucination [Recovering/Resolving]
  - Balance disorder [Recovering/Resolving]
  - Toxicity to various agents [Unknown]
  - Fall [Unknown]
